FAERS Safety Report 19397085 (Version 2)
Quarter: 2021Q2

REPORT INFORMATION
  Report Type: Spontaneous
  Country: US (occurrence: US)
  Receive Date: 20210609
  Receipt Date: 20210621
  Transmission Date: 20210717
  Serious: No
  Sender: FDA-Public Use
  Company Number: US-TEVA-2021-US-1917706

PATIENT
  Age: 70 Year
  Sex: Male

DRUGS (2)
  1. PRAMIPEXOLE. [Suspect]
     Active Substance: PRAMIPEXOLE
     Route: 065
  2. PREGABALIN. [Suspect]
     Active Substance: PREGABALIN
     Route: 065

REACTIONS (10)
  - Renal disorder [Unknown]
  - Drug ineffective [Unknown]
  - Depression [Unknown]
  - Anxiety [Unknown]
  - Emotional distress [Unknown]
  - Gambling disorder [Unknown]
  - Somnolence [Recovered/Resolved]
  - Weight decreased [Unknown]
  - Impaired quality of life [Unknown]
  - Oedema peripheral [Recovered/Resolved]
